FAERS Safety Report 9900652 (Version 3)
Quarter: 2014Q2

REPORT INFORMATION
  Report Type: Spontaneous
  Country: ES (occurrence: ES)
  Receive Date: 20140217
  Receipt Date: 20140515
  Transmission Date: 20141212
  Serious: Yes (Other)
  Sender: FDA-Public Use
  Company Number: ES-ROCHE-1298049

PATIENT
  Age: 47 Year
  Sex: 0
  Weight: 72 kg

DRUGS (13)
  1. MABTHERA [Suspect]
     Indication: B-CELL LYMPHOMA
     Route: 042
     Dates: start: 20121031, end: 20130218
  2. MABTHERA [Suspect]
     Route: 042
     Dates: start: 20130418
  3. VINCRISTINE [Suspect]
     Indication: B-CELL LYMPHOMA
     Route: 042
     Dates: start: 20121031, end: 20130218
  4. METHYLPREDNISOLONE [Concomitant]
     Indication: B-CELL LYMPHOMA
     Route: 042
     Dates: start: 20121031, end: 20130218
  5. CYCLOPHOSPHAMIDE [Concomitant]
     Route: 042
     Dates: start: 20121031, end: 20130218
  6. DOXORUBICIN [Concomitant]
     Indication: B-CELL LYMPHOMA
     Route: 042
     Dates: start: 20121031, end: 20130218
  7. OMEPRAZOL [Concomitant]
     Dosage: IN 1 DAY
     Route: 048
  8. FOLIC ACID [Concomitant]
     Dosage: X IN 1 DAY
     Route: 048
  9. PYRIDOXINE [Concomitant]
     Route: 048
  10. DOMPERIDONE [Concomitant]
     Route: 048
  11. FILGRASTIM [Concomitant]
     Route: 058
  12. PARACETAMOL [Concomitant]
     Route: 042
  13. ONDANSETRON [Concomitant]
     Route: 042

REACTIONS (2)
  - Hypertriglyceridaemia [Recovered/Resolved]
  - Deafness neurosensory [Not Recovered/Not Resolved]
